FAERS Safety Report 13485551 (Version 1)
Quarter: 2017Q2

REPORT INFORMATION
  Report Type: Spontaneous
  Country: US (occurrence: US)
  Receive Date: 20170426
  Receipt Date: 20170426
  Transmission Date: 20170830
  Serious: Yes (Hospitalization, Other)
  Sender: FDA-Public Use
  Company Number: US-PFIZER INC-2016233380

PATIENT
  Age: 64 Year
  Sex: Male

DRUGS (122)
  1. INSULIN ASPART [Concomitant]
     Active Substance: INSULIN ASPART
     Dosage: UNK, AS NEEDED (2-12 UNITS, INJ, SUBCUT)
     Route: 058
     Dates: start: 20160425
  2. PANTOPRAZOLE [Concomitant]
     Active Substance: PANTOPRAZOLE
     Dosage: 40 MG, 1X/DAY
     Route: 048
  3. SILDENAFIL. [Concomitant]
     Active Substance: SILDENAFIL
     Dosage: 20 MG, 3X/DAY (TID WHILE AWAKE)
     Route: 048
     Dates: start: 20160301
  4. SODIUM CHLORIDE. [Concomitant]
     Active Substance: SODIUM CHLORIDE
     Dosage: 1000 ML, UNK (1,000 ML, IV INFUSION,TOTAL VOLUME (ML) = 1000, REPLACE EVERY = 72 HR)
     Dates: start: 20160208
  5. PERCOCET [Concomitant]
     Active Substance: ACETAMINOPHEN\OXYCODONE HYDROCHLORIDE
     Dosage: 1 DF, AS NEEDED(EVERY 4 HR)
     Route: 048
     Dates: start: 20160215
  6. CIPROFLOXACIN. [Concomitant]
     Active Substance: CIPROFLOXACIN
     Dosage: 500 MG, 2X/DAY
     Route: 048
  7. IPRATROPIUM [Concomitant]
     Active Substance: IPRATROPIUM
     Dosage: 1 DF, 1X/DAY (0.5 MG  = 2.5 ML, INHAL SOL, NEB, ONCE)
     Dates: start: 20160324, end: 20160324
  8. MAGNESIUM SULFATE. [Concomitant]
     Active Substance: MAGNESIUM SULFATE
     Dosage: UNK UNK, AS NEEDED (3 GM= 300 ML, IV SOLUTION, IV PIGGYBACK, EVERY 6 HR)
     Route: 042
     Dates: start: 20160208
  9. FISHCAP [Concomitant]
     Dosage: 1 DF, 1X/DAY
     Route: 048
  10. POTASSIUM CHLORIDE. [Concomitant]
     Active Substance: POTASSIUM CHLORIDE
     Dosage: 20 MEQ, AS NEEDED (20 MEQ = 1 TAB (S), TAB -SR, ORAL, BID)
     Route: 048
     Dates: start: 20160318
  11. POTASSIUM CITRATE. [Concomitant]
     Active Substance: POTASSIUM CITRATE
     Dosage: 20 MEQ, 2X/DAY
     Route: 048
  12. SPIRONOLACTONE. [Concomitant]
     Active Substance: SPIRONOLACTONE
     Dosage: 12.5 MG, 1X/DAY (12.5 MG = 1 TAB(S), TAB, ORAL, DAILY W BREAKFAST)
     Route: 048
  13. VITAMIN E [Concomitant]
     Active Substance: .ALPHA.-TOCOPHEROL
     Dosage: 400 IU, 1X/DAY
     Route: 048
  14. AMBIEN [Concomitant]
     Active Substance: ZOLPIDEM TARTRATE
     Dosage: 10 MG, 1X/DAY (1 TABS(S), ORAL, NIGHTLY (BEDTIME))
  15. CARVEDILOL. [Concomitant]
     Active Substance: CARVEDILOL
     Dosage: 25 MG, 2X/DAY (BID W MEALS)
     Route: 048
  16. COLACE [Concomitant]
     Active Substance: DOCUSATE SODIUM
     Indication: CONSTIPATION
     Dosage: 100 MG, AS NEEDED (100 MG = 1 CAP(S), CAP, ORAL, BID, PRN )
     Route: 048
  17. FINASTERIDE. [Concomitant]
     Active Substance: FINASTERIDE
     Dosage: 5 MG, DAILY
     Route: 048
     Dates: start: 20160328
  18. DEXTROSE. [Concomitant]
     Active Substance: DEXTROSE
     Dosage: UNK UNK, AS NEEDED (12.5 GM = 25 ML, INJ, IV PUSH)
     Route: 042
     Dates: start: 20160211
  19. LOSARTAN. [Concomitant]
     Active Substance: LOSARTAN
     Dosage: 50 MG, DAILY
     Route: 048
  20. WARFARIN [Concomitant]
     Active Substance: WARFARIN
     Dosage: 5 MG, 1X/DAY (1 TAB(S), ORAL, NIGHTLY ( BEDTIME) , TAKE 2 MG TONIGHT AND THEN 3 MG NIGHTLY)
     Route: 048
  21. CLOPIDOGREL [Concomitant]
     Active Substance: CLOPIDOGREL BISULFATE
     Dosage: 75 MG, 1X/DAY (DAILY W BREAKKFAST)
     Route: 048
  22. FUROSEMIDE. [Concomitant]
     Active Substance: FUROSEMIDE
     Dosage: 40 MG, 1X/DAY
     Route: 048
     Dates: start: 20160317
  23. MAGNESIUM SULFATE. [Concomitant]
     Active Substance: MAGNESIUM SULFATE
     Dosage: UNK UNK, AS NEEDED (1 GM= 100 ML, IV SOLUTION, IV PIGGYBACK, EVERY 6 HR)
     Route: 042
     Dates: start: 20160208
  24. MAGNESIUM SULFATE. [Concomitant]
     Active Substance: MAGNESIUM SULFATE
     Dosage: UNK UNK, AS NEEDED (2 GM= 50 ML, IV SOLUTION, IV PIGGYBACK, EVERY 6 HR)
     Route: 042
     Dates: start: 20160208
  25. SENNOSIDES. [Concomitant]
     Active Substance: SENNOSIDES
     Dosage: 8.6 MG, 1X/DAY
     Route: 048
     Dates: start: 20160401, end: 20160401
  26. SODIUM CHLORIDE. [Concomitant]
     Active Substance: SODIUM CHLORIDE
     Dosage: 250 ML, AS NEEDED (250 ML, IV INFUSION)
     Route: 041
     Dates: start: 20160322, end: 20160323
  27. CLONAZEPAM. [Concomitant]
     Active Substance: CLONAZEPAM
     Dosage: 1 MG, 1X/DAY (1 MG = 1 TAB(S), TAB, ORAL, NIGHTLY (BEDTIME))
     Route: 048
  28. DEXTROSE. [Concomitant]
     Active Substance: DEXTROSE
     Dosage: UNK, AS NEEDED (25 GM = 50 ML, INJ, IV PUSH)
  29. INSULIN ASPART [Concomitant]
     Active Substance: INSULIN ASPART
     Indication: BLOOD GLUCOSE
     Dosage: 6 UNIT AT DAILY AT BREAKFAST, 8 UNITS DAILY AT LUNCH AND DINNER# 10 ML
     Route: 058
  30. MAGNESIUM SULFATE. [Concomitant]
     Active Substance: MAGNESIUM SULFATE
     Dosage: UNK, AS NEEDED (3 GM, = 300 ML, IV SOLN)
     Dates: start: 20160425
  31. MAGNESIUM SULFATE. [Concomitant]
     Active Substance: MAGNESIUM SULFATE
     Dosage: UNK, AS NEEDED (1 GM, = 100 ML, IV SOLN)
     Dates: start: 20160425, end: 20160425
  32. POTASSIUM CHLORIDE. [Concomitant]
     Active Substance: POTASSIUM CHLORIDE
     Dosage: 20 MEQ, AS NEEDED (20 MEQ, IV SOLN, IV,RATE = 50 ML/HR, INFUSE OVER = 2 HR, TOTAL VOLUME (ML) =100)
     Route: 042
     Dates: start: 20160222
  33. BACLOFEN. [Concomitant]
     Active Substance: BACLOFEN
     Dosage: 10 MG, 3X/DAY
     Route: 048
  34. CIPROFLOXACIN. [Concomitant]
     Active Substance: CIPROFLOXACIN
     Dosage: 500 MG, 2X/DAY
     Route: 048
     Dates: start: 20160330, end: 20160401
  35. FUROSEMIDE. [Concomitant]
     Active Substance: FUROSEMIDE
     Dosage: 1 DF, 1X/DAY (40 MG = 4 ML, INJ IV)
     Route: 042
     Dates: start: 20160318
  36. METOPROLOL. [Concomitant]
     Active Substance: METOPROLOL
     Dosage: 12.5 MG, 2X/DAY
     Route: 048
     Dates: start: 20160314
  37. POTASSIUM CHLORIDE. [Concomitant]
     Active Substance: POTASSIUM CHLORIDE
     Dosage: 20 MEQ, AS NEEDED (20 MEQ = 15 ML, ORAL SOLN, ORAL, DAILY)
     Route: 048
     Dates: start: 20160425
  38. SENNOSIDES. [Concomitant]
     Active Substance: SENNOSIDES
     Dosage: 17.2 MG, 1X/DAY (NIGHTLY (BEDTIME))
     Dates: start: 20160310
  39. REVATIO [Suspect]
     Active Substance: SILDENAFIL CITRATE
     Indication: PULMONARY HYPERTENSION
     Dosage: 20 MG, 3X/DAY
     Route: 048
  40. DOXYCYCLINE HYCLATE. [Concomitant]
     Active Substance: DOXYCYCLINE HYCLATE
     Dosage: 100 MG, 2X/DAY
     Route: 048
  41. ZETIA [Concomitant]
     Active Substance: EZETIMIBE
     Dosage: 10 MG, 1X/DAY
     Dates: start: 20160302
  42. INSULIN ASPART [Concomitant]
     Active Substance: INSULIN ASPART
     Dosage: UNK (8 UNITS (S) = 0.08 ML, INJ, SUBCUT, DAILY AC DINNER)
     Route: 058
     Dates: start: 20160314
  43. SEROQUEL [Concomitant]
     Active Substance: QUETIAPINE FUMARATE
     Dosage: 50 MG, 1X/DAY (NIGHTLY (BEDTIME))
     Route: 048
  44. ACETAMINOPHEN. [Concomitant]
     Active Substance: ACETAMINOPHEN
     Indication: HEADACHE
     Dosage: 650 MG, AS NEEDED (2 TAB(S), TAB, ORAL, EVERY 4 HR,PRN)
     Route: 048
     Dates: start: 20160315
  45. ALLOPURINOL. [Concomitant]
     Active Substance: ALLOPURINOL
     Dosage: 300 MG, 1X/DAY
     Route: 048
     Dates: start: 20160202
  46. FUROSEMIDE. [Concomitant]
     Active Substance: FUROSEMIDE
     Dosage: 1 DF, 1X/DAY (60 MG = 6 ML, INJ IV)
     Route: 042
     Dates: start: 20160330, end: 20160330
  47. FUROSEMIDE. [Concomitant]
     Active Substance: FUROSEMIDE
     Dosage: 1 DF, 1X/DAY (60 MG = 6 ML, INJ IV)
     Route: 042
     Dates: start: 20160324
  48. DEXTROSE. [Concomitant]
     Active Substance: DEXTROSE
  49. IPRATROPIUM [Concomitant]
     Active Substance: IPRATROPIUM
     Dosage: 2.5 ML, 3X/DAY (2.5 ML, INHAL SOLN, IPV, RT, TID)
     Dates: start: 20160314, end: 20160321
  50. IRBESARTAN. [Concomitant]
     Active Substance: IRBESARTAN
     Indication: TUMOUR NECROSIS FACTOR RECEPTOR-ASSOCIATED PERIODIC SYNDROME
     Dosage: 75 MG, 1X/DAY
     Dates: start: 20160330
  51. VENOFER [Concomitant]
     Active Substance: IRON SUCROSE
     Dosage: UNK (100 MG, IV PIGGYBACK, ONCE,RATE = 400 ML/HR, INFUSE OVER = 15 MINUTE(S), TOTAL VOLUME (ML)=100)
     Route: 042
     Dates: start: 20160322, end: 20160322
  52. MAGNESIUM SULFATE. [Concomitant]
     Active Substance: MAGNESIUM SULFATE
     Dosage: UNK UNK, AS NEEDED (4 GM= 100 ML, IV SOLUTION, IV PIGGYBACK, EVERY 6 HR)
     Route: 042
     Dates: start: 20160208
  53. NITROSTAT [Concomitant]
     Active Substance: NITROGLYCERIN
     Indication: CHEST PAIN
     Dosage: 0.4 MG, AS NEEDED (0.4 MG = 1 TAB (S), TAB - SL, SUBLING, EVERY 5 MINUTES, PRN)
  54. POTASSIUM CHLORIDE. [Concomitant]
     Active Substance: POTASSIUM CHLORIDE
     Dosage: 40 MEQ, AS NEEDED (40 MEQ = 30 ML, ORAL SOLN)
     Route: 048
     Dates: start: 20160425
  55. POTASSIUM CHLORIDE. [Concomitant]
     Active Substance: POTASSIUM CHLORIDE
     Dosage: 20 MEQ, AS NEEDED (20 MEQ, = 1 TAB (S), TAB -SR, ORAL, BID)
     Route: 048
     Dates: start: 20160401
  56. TORSEMIDE. [Concomitant]
     Active Substance: TORSEMIDE
     Dosage: 20 MG, 1X/DAY (BID W MEALS)
     Route: 048
     Dates: start: 20160331, end: 20160331
  57. DEXTROSE. [Concomitant]
     Active Substance: DEXTROSE
     Dosage: UNK UNK, AS NEEDED (25 GM, = 50 ML, INJ, IV PUSH)
     Route: 042
     Dates: start: 20160211
  58. GLUCOSE [Concomitant]
     Active Substance: DEXTROSE
     Dosage: 16 G, AS NEEDED(16 GM= 4 TAB(S), TAB - CHEW, ORAL, SLIDING SCALE, ROUTINE, PRN)
     Route: 048
     Dates: start: 20160211
  59. INSULIN ASPART [Concomitant]
     Active Substance: INSULIN ASPART
     Dosage: UNK, AS NEEDED (2-12 UNITS, INJ, SUBCUT)
     Route: 058
     Dates: start: 20160211
  60. INSULIN GLARGINE [Concomitant]
     Active Substance: INSULIN GLARGINE
     Dosage: 12 IU, UNK (12 UNITS, INJ, SUBCUT, BIDAC, # 10 ML)
     Route: 058
     Dates: start: 20160307
  61. LOSARTAN. [Concomitant]
     Active Substance: LOSARTAN
     Dosage: 25 MG, DAILY
     Route: 048
  62. MAGNESIUM SULFATE. [Concomitant]
     Active Substance: MAGNESIUM SULFATE
     Dosage: UNK, AS NEEDED (2 GM = 50 ML, IV SOLN)
     Dates: start: 20160425
  63. MAGNESIUM SULFATE. [Concomitant]
     Active Substance: MAGNESIUM SULFATE
     Dosage: UNK, AS NEEDED (4 GM, = 100 ML, IV SOLN)
     Dates: start: 20160425
  64. CIPROFLOXACIN. [Concomitant]
     Active Substance: CIPROFLOXACIN
     Dosage: 500 MG, 2X/DAY
     Route: 048
     Dates: start: 20160324, end: 20160407
  65. LASIX [Concomitant]
     Active Substance: FUROSEMIDE
     Dosage: 1 DF, 1X/DAY ( 20MG = 2 ML, INJ, IV, ONCE)
     Route: 042
     Dates: start: 20160323, end: 20160323
  66. IRBESARTAN. [Concomitant]
     Active Substance: IRBESARTAN
     Dosage: 37.5 MG, 1X/DAY
     Route: 048
     Dates: start: 20160311
  67. LACTULOSE. [Concomitant]
     Active Substance: LACTULOSE
     Indication: CONSTIPATION
     Dosage: 30 ML, AS NEEDED (30 ML, ORAL SOLN, ORAL, EVERY 6 HR)
     Route: 048
     Dates: start: 20160218
  68. DITROPAN [Concomitant]
     Active Substance: OXYBUTYNIN CHLORIDE
     Dosage: 5 MG, 1X/DAY
     Route: 048
     Dates: start: 20160322
  69. POTASSIUM CHLORIDE. [Concomitant]
     Active Substance: POTASSIUM CHLORIDE
     Dosage: 20 MEQ, AS NEEDED (20 MEQ = 15 ML, ORAL SOLN, ORAL, DAILY)
     Route: 048
     Dates: start: 20160222
  70. PANTOPRAZOLE [Concomitant]
     Active Substance: PANTOPRAZOLE
     Dosage: 80 MG, UNK (SODIUM CHLORIDE 0.9% 100 ML + PANTOPRAZOLE ADDITIVE 80 MG)
  71. ASPIRIN. [Concomitant]
     Active Substance: ASPIRIN
     Dosage: 325 MG, DAILY
     Route: 048
     Dates: start: 20160302
  72. CARVEDILOL. [Concomitant]
     Active Substance: CARVEDILOL
     Dosage: 12.5 MG, 2X/DAY(W MEALS)
     Route: 048
     Dates: start: 20170330
  73. DEXTROSE. [Concomitant]
     Active Substance: DEXTROSE
     Indication: BLOOD GLUCOSE
     Dosage: UNK, AS NEEDED (12.5 GM = 25 ML, INJ, IV PUSH)
     Dates: start: 20160425
  74. INSULIN ASPART [Concomitant]
     Active Substance: INSULIN ASPART
     Dosage: UNK (6 UNITS (S) = 0.06 ML, INJ, SUBCUT, DAILY AC BREAKFAST)
     Route: 058
     Dates: start: 20160319
  75. INSULIN ASPART [Concomitant]
     Active Substance: INSULIN ASPART
     Dosage: UNK (8 UNITS (S) = 0.06 ML, INJ, SUBCUT, DAILY AC LUNCH)
     Route: 058
     Dates: start: 20160315
  76. KLOR-CON M20 [Concomitant]
     Active Substance: POTASSIUM CHLORIDE
     Dosage: 20 MEQ, 2X/DAY
     Route: 048
  77. FLOMAX [Concomitant]
     Active Substance: TAMSULOSIN HYDROCHLORIDE
     Dosage: 0.4 MG, 1X/DAY
     Route: 048
  78. CEFEPIME [Concomitant]
     Active Substance: CEFEPIME HYDROCHLORIDE
     Dosage: 2 G, 2X/DAY (2 GM, INJ, IV, EVERY 12 HR)
     Route: 042
     Dates: start: 20160322, end: 20160325
  79. HUMULIN NOS [Concomitant]
     Active Substance: INSULIN HUMAN
     Dosage: UNK (40 UNIT (S), SUBCUT, TID) (INSULIN ISOPHANE:70,INSULIN REGULAR:30)
     Route: 058
  80. IPRATROPIUM [Concomitant]
     Active Substance: IPRATROPIUM
     Dosage: 1 DF, 1X/DAY (0.5 MG  = 2.5 ML, INHAL SOL, NEB, ONCE)
     Dates: start: 20160324, end: 20160324
  81. METOPROLOL. [Concomitant]
     Active Substance: METOPROLOL
     Dosage: 12.5 MG, 1X/DAY
     Route: 048
     Dates: start: 20160327, end: 20160327
  82. ONDANSETRON [Concomitant]
     Active Substance: ONDANSETRON
     Indication: NAUSEA
     Dosage: UNK, AS NEEDED (4MG = 2ML, INJ, IV, EVERY 6 HR)
     Route: 042
     Dates: start: 20160304
  83. POTASSIUM CHLORIDE. [Concomitant]
     Active Substance: POTASSIUM CHLORIDE
     Dosage: 40 MEQ, AS NEEDED (40 MEQ, = 30ML, ORAL SOLN)
     Route: 048
     Dates: start: 20160222
  84. RANEXA [Concomitant]
     Active Substance: RANOLAZINE
     Dosage: 1000 MG, 2X/DAY
     Route: 048
  85. SIMETHICONE (DIMETHICONE) [Concomitant]
     Active Substance: DIMETHICONE
     Indication: FLATULENCE
     Dosage: 80 MG, AS NEEDED (80 MG= 1 TABS, TAB-CHEW, CHEW, EVERY 4 HR)
     Dates: start: 20160307
  86. TORSEMIDE. [Concomitant]
     Active Substance: TORSEMIDE
     Dosage: 20 MG, 1X/DAY (BID W MEALS)
     Route: 048
     Dates: start: 20160331
  87. TORSEMIDE. [Concomitant]
     Active Substance: TORSEMIDE
     Indication: WEIGHT INCREASED
     Dosage: UNK UNK, AS NEEDED (TAB, 1/2 TAB (50MG) ORAL DAILY, MAY ALSO TAKE 1/2 TAB (50 MG) ORAL AS NEEDED)
     Route: 048
  88. VANCOMYCIN [Concomitant]
     Active Substance: VANCOMYCIN
     Dosage: UNK (1 GM =1 VIAL(S), INJ, IV, EVERY 18 HR)
     Route: 042
     Dates: start: 20160320, end: 20160323
  89. ASPIRIN. [Concomitant]
     Active Substance: ASPIRIN
     Dosage: 81 MG, 1X/DAY (1 TAB (S), TAB- CHEW, ORAL, DAILY W BREAKFAST)
     Route: 048
  90. CARVEDILOL. [Concomitant]
     Active Substance: CARVEDILOL
     Dosage: 12.5 MG, 2X/DAY (12.5 MG = 0.5 TAB(S), TAB, ORAL, BID W MEALS)
     Route: 048
  91. GLUCOSE [Concomitant]
     Active Substance: DEXTROSE
     Indication: BLOOD GLUCOSE
     Dosage: 16 G, AS NEEDED(16 GM= 4 TAB(S), TAB - CHEW, ORAL, SLIDING SCALE, ROUTINE, PRN)
     Route: 048
     Dates: start: 20160425
  92. POTASSIUM CHLORIDE. [Concomitant]
     Active Substance: POTASSIUM CHLORIDE
     Dosage: 20 MEQ, AS NEEDED (20MEQ= IV SOLN,RATE =50 ML/HR, INFUSE OVER = 2 HR, TOTAL VOLUME (ML) = 100)
     Route: 042
     Dates: start: 20160425
  93. SEROQUEL [Concomitant]
     Active Substance: QUETIAPINE FUMARATE
     Dosage: 25 MG, 1X/DAY
     Route: 048
     Dates: start: 20160307
  94. WARFARIN [Concomitant]
     Active Substance: WARFARIN
     Dosage: 1 MG, UNK (TAKE AS DIRECTED)
     Route: 048
  95. METOPROLOL. [Concomitant]
     Active Substance: METOPROLOL
     Dosage: 25 MG, 1X/DAY
     Route: 048
     Dates: start: 20160328
  96. ONDANSETRON [Concomitant]
     Active Substance: ONDANSETRON
     Indication: VOMITING
  97. PANTOPRAZOLE [Concomitant]
     Active Substance: PANTOPRAZOLE
     Dosage: 40 MG, 1X/DAY
     Route: 048
     Dates: start: 20160302
  98. TORSEMIDE. [Concomitant]
     Active Substance: TORSEMIDE
     Dosage: 40 MG, 2X/DAY
     Route: 048
     Dates: start: 20160331
  99. TORSEMIDE. [Concomitant]
     Active Substance: TORSEMIDE
     Dosage: 20 MG, 1X/DAY (BID W MEALS)
     Route: 048
     Dates: start: 20160329
  100. WARFARIN [Concomitant]
     Active Substance: WARFARIN
     Dosage: 7 MG, 1X/DAY (7 MG = 7 TABS, TAB, ORAL, NIGHTLY (BEDTIME))
     Route: 048
     Dates: start: 20160326
  101. SODIUM CHLORIDE. [Concomitant]
     Active Substance: SODIUM CHLORIDE
     Dosage: 250 ML, AS NEEDED
     Dates: start: 20160425, end: 20160426
  102. CLONAZEPAM. [Concomitant]
     Active Substance: CLONAZEPAM
     Dosage: 1 MG, 2X/DAY
     Route: 048
  103. SEROQUEL [Concomitant]
     Active Substance: QUETIAPINE FUMARATE
     Dosage: 75 MG, 1X/DAY (TAKE 1 TABLET BY MOUTH EVERY MORNING AND TAKE 2 TABLETS BY MOUTH AT BEDTIME)
     Route: 048
  104. TORSEMIDE. [Concomitant]
     Active Substance: TORSEMIDE
     Dosage: 40 MG, 2X/DAY (4 TAB(S), TAB, ORAL, BID WITH MEALS)
     Route: 048
  105. PERCOCET [Concomitant]
     Active Substance: ACETAMINOPHEN\OXYCODONE HYDROCHLORIDE
     Indication: PAIN
     Dosage: 2 DF, AS NEEDED (OXYCODONE: 5;ACETAMINOPHEN:325)
     Route: 048
     Dates: start: 20160215
  106. VITAMIN C [Concomitant]
     Active Substance: ASCORBIC ACID
     Dosage: 500 MG, 1X/DAY
     Route: 048
  107. CEFEPIME [Concomitant]
     Active Substance: CEFEPIME HYDROCHLORIDE
     Dosage: 2 G, 2X/DAY (2 GM, INJ, IV, EVERY 12 HR)
     Route: 042
     Dates: start: 20160319, end: 20160322
  108. DULOXETINE. [Concomitant]
     Active Substance: DULOXETINE
     Dosage: 30 MG, 2X/DAY
     Route: 048
     Dates: start: 20160214
  109. ADVAIR HFA [Concomitant]
     Active Substance: FLUTICASONE PROPIONATE\SALMETEROL XINAFOATE
     Dosage: 1 DF, AS NEEDED (FLUTICASONE: 250 MCG;SALMETEROL:50 MCG)
  110. IPRATROPIUM [Concomitant]
     Active Substance: IPRATROPIUM
     Dosage: 2.5 ML, 3X/DAY (2.5 ML, INHAL SOLN, IPV, RT, TID)
     Dates: start: 20160322, end: 20160326
  111. VENOFER [Concomitant]
     Active Substance: IRON SUCROSE
     Dosage: UNK (200 MG, IV PIGGYBACK, ONCERATE = 100ML/HR, INFUSE OVER= 1 HR, TOTAL VOLUME (ML) =100)
     Route: 042
     Dates: start: 20160331, end: 20160331
  112. IMDUR [Concomitant]
     Active Substance: ISOSORBIDE MONONITRATE
     Dosage: 120 MG, 1X/DAY (EVERY AM)
     Route: 048
  113. LOSARTAN. [Concomitant]
     Active Substance: LOSARTAN
     Dosage: 50 MG, 1X/DAY
     Route: 048
  114. POTASSIUM CHLORIDE. [Concomitant]
     Active Substance: POTASSIUM CHLORIDE
     Dosage: 20 MEQ, AS NEEDED (20 MEQ, = 1 TAB (S), TAB -SR, ORAL)
     Route: 048
     Dates: start: 20160330
  115. SODIUM CHLORIDE. [Concomitant]
     Active Substance: SODIUM CHLORIDE
     Dosage: UNK UNK, AS NEEDED (2 SPRAY (S), NASAL SPRAY, NARES- BOTH, EVERY 4 HR,)
     Route: 045
     Dates: start: 20160315
  116. TAMSULOSIN [Concomitant]
     Active Substance: TAMSULOSIN
     Dosage: 0.4 MG, 1X/DAY (0.4 MG = 1 CAP(S), CAP, ORAL, NIGHTLY (BEDTIME))
     Route: 048
     Dates: start: 20160327
  117. WARFARIN [Concomitant]
     Active Substance: WARFARIN
     Dosage: 6 MG, UNK (6 MG = 2 TABS, TAB, ORAL, NIGHTLY (BEDTIME)
     Dates: start: 20160312
  118. REVATIO [Suspect]
     Active Substance: SILDENAFIL CITRATE
     Indication: CARDIAC DISORDER
  119. SODIUM CHLORIDE. [Concomitant]
     Active Substance: SODIUM CHLORIDE
     Indication: TRANSFUSION
     Dosage: 100 ML, UNK (100 ML, IV INFUSION; RATE = 10 ML/HR, INFUSE OVER =10 HR)
     Route: 041
     Dates: start: 20160424
  120. AMIODARONE [Concomitant]
     Active Substance: AMIODARONE
     Dosage: 200 MG, 1X/DAY
     Route: 048
  121. COLACE [Concomitant]
     Active Substance: DOCUSATE SODIUM
     Dosage: 100 MG, 2X/DAY
     Dates: start: 20160304
  122. CYMBALTA [Concomitant]
     Active Substance: DULOXETINE HYDROCHLORIDE
     Dosage: 30 MG, 2X/DAY
     Route: 048

REACTIONS (2)
  - Pericardial effusion [Unknown]
  - Cardiac failure congestive [Unknown]
